FAERS Safety Report 7082772-3 (Version None)
Quarter: 2010Q4

REPORT INFORMATION
  Report Type: 
  Country: None (occurrence: None)
  Receive Date: 20101104
  Receipt Date: 20101026
  Transmission Date: 20110411
  Serious: Yes (Hospitalization)
  Sender: FDA-Public Use
  Company Number: FR-BRISTOL-MYERS SQUIBB COMPANY-15364086

PATIENT
  Age: 66 Year
  Sex: Female

DRUGS (9)
  1. GLUCOPHAGE [Suspect]
     Dosage: DOSAGE INCREASED TO 3DF/DAY FROM SEP10
     Route: 048
     Dates: start: 20100901, end: 20100915
  2. VASTAREL [Concomitant]
     Dosage: VASTAREL 35MG TABS
     Route: 048
  3. NITROGLYCERIN [Concomitant]
     Route: 048
  4. CONCOR [Concomitant]
     Dosage: CONCOR 25MG
  5. ZESTRIL [Concomitant]
     Dosage: ZESTRIL 5MG
  6. ASPEGIC 1000 [Concomitant]
  7. SIMVASTATIN [Concomitant]
  8. ZITHROMAX [Concomitant]
     Dosage: ZITHROMAX 250MG
  9. PARACETAMOL [Concomitant]

REACTIONS (1)
  - METABOLIC ACIDOSIS [None]
